FAERS Safety Report 25354820 (Version 1)
Quarter: 2025Q2

REPORT INFORMATION
  Report Type: Report from Study
  Country: US (occurrence: US)
  Receive Date: 20250524
  Receipt Date: 20250524
  Transmission Date: 20250717
  Serious: Yes (Hospitalization)
  Sender: ABBVIE
  Company Number: US-ABBVIE-6292570

PATIENT
  Age: 70 Year
  Sex: Male

DRUGS (1)
  1. SKYRIZI [Suspect]
     Active Substance: RISANKIZUMAB-RZAA
     Indication: Psoriasis
     Route: 058

REACTIONS (8)
  - Rib fracture [Recovering/Resolving]
  - Nerve compression [Recovered/Resolved]
  - Dysstasia [Recovered/Resolved]
  - Rib fracture [Recovered/Resolved]
  - Pain [Unknown]
  - Fall [Recovered/Resolved]
  - Limb injury [Unknown]
  - Fall [Recovered/Resolved]

NARRATIVE: CASE EVENT DATE: 20250401
